FAERS Safety Report 19230605 (Version 4)
Quarter: 2021Q2

REPORT INFORMATION
  Report Type: Report from Study
  Country: US (occurrence: US)
  Receive Date: 20210507
  Receipt Date: 20210622
  Transmission Date: 20210717
  Serious: Yes (Hospitalization, Other)
  Sender: FDA-Public Use
  Company Number: US-BRISTOL-MYERS SQUIBB COMPANY-BMS-2021-043116

PATIENT
  Age: 31 Year
  Sex: Male

DRUGS (2)
  1. IPILIMUMAB [Suspect]
     Active Substance: IPILIMUMAB
     Indication: PITUITARY TUMOUR
     Dosage: UNK
     Route: 065
     Dates: start: 20210402, end: 20210426
  2. NIVOLUMAB [Suspect]
     Active Substance: NIVOLUMAB
     Indication: PITUITARY TUMOUR
     Dosage: UNK
     Route: 065
     Dates: start: 20210402, end: 20210426

REACTIONS (3)
  - Meningitis aseptic [Recovering/Resolving]
  - Dehydration [Unknown]
  - Inappropriate antidiuretic hormone secretion [Unknown]

NARRATIVE: CASE EVENT DATE: 20210430
